FAERS Safety Report 7134807 (Version 1)
Quarter: 2020Q3

REPORT INFORMATION
  Report Type: Report from Study
  Country: RU (occurrence: RU)
  Receive Date: 20090930
  Receipt Date: 20090930
  Transmission Date: 20201104
  Serious: Yes (Life-Threatening, Hospitalization)
  Sender: FDA-Public Use
  Company Number: RU-ROCHE-657498

PATIENT
  Age: 56 Year
  Sex: Male
  Weight: 91.6 kg

DRUGS (5)
  1. TASPOGLUTIDE [Suspect]
     Active Substance: TASPOGLUTIDE
     Indication: TYPE 2 DIABETES MELLITUS
     Dosage: FORM: SYRINGE, LAST DOSE PRIOR TO SAE: 16 SEP 2009.
     Route: 058
     Dates: start: 20090225, end: 20090918
  2. METFORMIN HYDROCHLORIDE. [Suspect]
     Active Substance: METFORMIN HYDROCHLORIDE
     Indication: PRODUCT USED FOR UNKNOWN INDICATION
     Dosage: DOSE: 1700
     Route: 065
     Dates: start: 20061103, end: 20090917
  3. FENOTEROL\IPRATROPIUM BROMIDE [Concomitant]
     Active Substance: FENOTEROL\IPRATROPIUM BROMIDE
     Dosage: DOSE: 2 DOSES DAILY.
     Dates: start: 2006
  4. AMLODIPINE [Suspect]
     Active Substance: AMLODIPINE BESYLATE
     Indication: PRODUCT USED FOR UNKNOWN INDICATION
     Route: 065
     Dates: start: 2006
  5. ENALAPRIL [Suspect]
     Active Substance: ENALAPRIL
     Indication: PRODUCT USED FOR UNKNOWN INDICATION
     Route: 065
     Dates: start: 2006

REACTIONS (1)
  - Myocardial infarction [Not Recovered/Not Resolved]

NARRATIVE: CASE EVENT DATE: 20090917
